FAERS Safety Report 6676139-7 (Version None)
Quarter: 2010Q2

REPORT INFORMATION
  Report Type: 
  Country: None (occurrence: None)
  Receive Date: 20100412
  Receipt Date: 20100402
  Transmission Date: 20101027
  Serious: Yes (Other)
  Sender: FDA-Public Use
  Company Number: US-KINGPHARMUSA00001-K201000404

PATIENT
  Sex: Male
  Weight: 61.224 kg

DRUGS (2)
  1. SEPTRA [Suspect]
     Indication: ACNE
     Dosage: 800/160 MG, BID
     Route: 048
     Dates: start: 20091230, end: 20100312
  2. MULTI-VITAMINS [Concomitant]

REACTIONS (10)
  - BLOOD BILIRUBIN INCREASED [None]
  - CHROMATURIA [None]
  - FATIGUE [None]
  - HEPATITIS [None]
  - HYPERTENSION [None]
  - INTESTINAL OBSTRUCTION [None]
  - JAUNDICE [None]
  - LIVER INJURY [None]
  - PYREXIA [None]
  - URINE BILIRUBIN INCREASED [None]
